FAERS Safety Report 7936982-0 (Version None)
Quarter: 2011Q4

REPORT INFORMATION
  Report Type: 
  Country: None (occurrence: None)
  Receive Date: 20111123
  Receipt Date: 20111108
  Transmission Date: 20120403
  Serious: Yes (Hospitalization, Other)
  Sender: FDA-Public Use
  Company Number: BR-ROCHE-723492

PATIENT
  Sex: Female
  Weight: 68 kg

DRUGS (18)
  1. CALTREN [Concomitant]
  2. DOMPERIDONE [Concomitant]
  3. ARADOIS H [Concomitant]
  4. ROQUINOL [Concomitant]
  5. MELOXICAM [Concomitant]
  6. MABTHERA [Suspect]
     Route: 042
  7. PREDNISONE [Concomitant]
  8. VITAMIN D [Concomitant]
  9. ARAVA [Concomitant]
  10. BROMAZEPAM [Concomitant]
  11. LEVOTHYROXINE SODIUM [Concomitant]
  12. POLARAMINE [Concomitant]
     Indication: PREMEDICATION
  13. FORMOTEROL FUMARATE [Concomitant]
  14. BROMAZEPAM [Concomitant]
     Indication: SLEEP DISORDER THERAPY
     Dosage: AS NEEDED
  15. CALCIUM [Concomitant]
  16. ACETAMINOPHEN [Concomitant]
     Indication: PREMEDICATION
  17. MABTHERA [Suspect]
     Indication: RHEUMATOID ARTHRITIS
     Dosage: LAST DOSE PRIOR TO SAE: JUL/2010
     Route: 042
     Dates: start: 20100707, end: 20100729
  18. OMEPRAZOLE [Concomitant]

REACTIONS (19)
  - SPINAL DISORDER [None]
  - HERPES ZOSTER [None]
  - ARTHRALGIA [None]
  - DECREASED IMMUNE RESPONSIVENESS [None]
  - NERVE COMPRESSION [None]
  - GAIT DISTURBANCE [None]
  - ALLERGIC BRONCHITIS [None]
  - NERVE ROOT COMPRESSION [None]
  - THROMBOSIS [None]
  - JOINT SWELLING [None]
  - ABDOMINAL HERNIA [None]
  - BONE PAIN [None]
  - MUSCULOSKELETAL DISORDER [None]
  - PRURITUS [None]
  - GASTROOESOPHAGEAL REFLUX DISEASE [None]
  - BODY HEIGHT DECREASED [None]
  - BRONCHITIS [None]
  - COUGH [None]
  - WEIGHT INCREASED [None]
